FAERS Safety Report 9008906 (Version 1)
Quarter: 2013Q1

REPORT INFORMATION
  Report Type: Report from Study
  Country: CZ (occurrence: CZ)
  Receive Date: 20130111
  Receipt Date: 20130111
  Transmission Date: 20140127
  Serious: Yes (Hospitalization)
  Sender: FDA-Public Use
  Company Number: CZ-AMGEN-CZECT2010000427

PATIENT
  Age: 52 Year
  Sex: Male
  Weight: 89 kg

DRUGS (13)
  1. PEGFILGRASTIM [Suspect]
     Indication: COLORECTAL CANCER METASTATIC
     Dosage: 6 MG, UNK
     Dates: start: 20100820
  2. AVASTIN /00848101/ [Concomitant]
     Dosage: 445 MG, UNK
     Dates: start: 20100817, end: 20101018
  3. OXALIPLATIN [Concomitant]
     Dosage: 163.8 MG, UNK
     Dates: start: 20100817, end: 20101018
  4. LEUCOVORIN /00566701/ [Concomitant]
     Dosage: 819 UNK, UNK
     Dates: start: 20100817, end: 20101018
  5. 5-FLUOROURACIL /00098801/ [Concomitant]
     Dosage: UNK MG, UNK
     Dates: start: 20100817, end: 20101020
  6. VASOCARDIN [Concomitant]
     Dosage: UNK
     Dates: start: 2007
  7. VERAPAMIL [Concomitant]
     Dosage: UNK
     Dates: start: 2007
  8. TRANDOLAPRIL [Concomitant]
     Dosage: 8 MG, UNK
     Dates: start: 2007
  9. ZOFRAN                             /00955301/ [Concomitant]
     Dosage: 8 MG, UNK
     Dates: start: 20100817, end: 20101018
  10. MAGNESIUM [Concomitant]
     Dosage: UNK
     Dates: start: 20100817, end: 20101018
  11. DEXAMETHASONE [Concomitant]
     Dosage: 16 MG, UNK
     Dates: start: 20010817, end: 20101018
  12. EGILOK [Concomitant]
     Dosage: 12.5 MG, BID
     Dates: start: 2007
  13. TARKA                              /01323401/ [Concomitant]
     Dosage: 1 DF, QD
     Dates: start: 2007

REACTIONS (2)
  - Peritonitis [Recovered/Resolved]
  - Colitis [Recovered/Resolved]
